FAERS Safety Report 24020881 (Version 2)
Quarter: 2025Q1

REPORT INFORMATION
  Report Type: Spontaneous
  Country: CA (occurrence: CA)
  Receive Date: 20240627
  Receipt Date: 20250124
  Transmission Date: 20250409
  Serious: Yes (Death, Hospitalization, Other)
  Sender: SANDOZ
  Company Number: CA-002147023-PHHY2017CA142206

PATIENT
  Age: 31 Year
  Sex: Female

DRUGS (36)
  1. OMALIZUMAB [Suspect]
     Active Substance: OMALIZUMAB
     Indication: Lung disorder
     Route: 058
     Dates: start: 20170901
  2. OMALIZUMAB [Suspect]
     Active Substance: OMALIZUMAB
     Dosage: 300 MG, Q4W
     Route: 058
     Dates: start: 20190503
  3. OMALIZUMAB [Suspect]
     Active Substance: OMALIZUMAB
     Dosage: 300 MG, Q4W
     Route: 058
     Dates: start: 20190725
  4. OMALIZUMAB [Suspect]
     Active Substance: OMALIZUMAB
     Dosage: 300 MG, Q4W
     Route: 058
     Dates: start: 20190826
  5. OMALIZUMAB [Suspect]
     Active Substance: OMALIZUMAB
     Route: 058
     Dates: start: 20171027
  6. OMALIZUMAB [Suspect]
     Active Substance: OMALIZUMAB
     Dosage: 300 MG, Q4W
     Route: 058
     Dates: start: 20200115
  7. OMALIZUMAB [Suspect]
     Active Substance: OMALIZUMAB
     Dosage: 300 MG, Q4W
     Route: 058
     Dates: start: 20200219
  8. OMALIZUMAB [Suspect]
     Active Substance: OMALIZUMAB
     Dosage: 300 MG, Q4W
     Route: 058
  9. OMALIZUMAB [Suspect]
     Active Substance: OMALIZUMAB
     Dosage: 300 MG, Q4W
     Route: 058
     Dates: start: 20180413
  10. OMALIZUMAB [Suspect]
     Active Substance: OMALIZUMAB
     Dosage: 300 MG, Q4W
     Route: 058
     Dates: start: 20180803
  11. OMALIZUMAB [Suspect]
     Active Substance: OMALIZUMAB
     Dosage: 300 MG, Q4W
     Route: 058
     Dates: start: 20181107
  12. OMALIZUMAB [Suspect]
     Active Substance: OMALIZUMAB
     Dosage: 300 MG, Q4W
     Route: 058
     Dates: start: 20190405
  13. OMALIZUMAB [Suspect]
     Active Substance: OMALIZUMAB
     Indication: Asthma
     Dosage: 300 MG, Q4W
     Route: 058
     Dates: start: 20170707
  14. OMALIZUMAB [Suspect]
     Active Substance: OMALIZUMAB
     Dosage: 300 MG, Q4W
     Route: 058
  15. OMALIZUMAB [Suspect]
     Active Substance: OMALIZUMAB
     Dosage: 300 MG, Q4W
     Route: 065
     Dates: start: 20180918
  16. OMALIZUMAB [Suspect]
     Active Substance: OMALIZUMAB
     Route: 058
  17. OMALIZUMAB [Suspect]
     Active Substance: OMALIZUMAB
     Route: 058
     Dates: start: 20180323
  18. OMALIZUMAB [Suspect]
     Active Substance: OMALIZUMAB
     Route: 065
     Dates: start: 20210803
  19. OMALIZUMAB [Suspect]
     Active Substance: OMALIZUMAB
     Route: 065
  20. VORICONAZOLE [Suspect]
     Active Substance: VORICONAZOLE
     Indication: Lung disorder
     Dosage: 200 MG, BID
     Route: 065
     Dates: start: 20171107
  21. VORICONAZOLE [Suspect]
     Active Substance: VORICONAZOLE
     Dosage: 400 MG, QD
     Route: 065
  22. VORICONAZOLE [Suspect]
     Active Substance: VORICONAZOLE
     Indication: Aspergillus infection
     Route: 065
  23. OMEPRAZOLE [Concomitant]
     Active Substance: OMEPRAZOLE
     Indication: Gastrooesophageal reflux disease
     Dosage: 1 DOSAGE FORM, BID
     Route: 048
     Dates: start: 2007
  24. OMEPRAZOLE [Concomitant]
     Active Substance: OMEPRAZOLE
     Route: 048
  25. PULMICORT TURBUHALER [Concomitant]
     Active Substance: BUDESONIDE
     Dosage: 4 DF, BID
     Route: 055
  26. PULMICORT TURBUHALER [Concomitant]
     Active Substance: BUDESONIDE
     Dosage: 4 DF, BID
     Route: 065
  27. PULMICORT TURBUHALER [Concomitant]
     Active Substance: BUDESONIDE
     Indication: Asthma
     Dosage: 4 DOSAGE FORM, BID
     Route: 055
     Dates: start: 2009, end: 2019
  28. SYMBICORT [Concomitant]
     Active Substance: BUDESONIDE\FORMOTEROL FUMARATE DIHYDRATE
     Indication: Asthma
     Dosage: 3 DF, (200 UG, BUDESONIDE, 6 UG FORMOTEROL FUMARATE) BID
     Route: 055
     Dates: start: 2009, end: 2019
  29. SYMBICORT [Concomitant]
     Active Substance: BUDESONIDE\FORMOTEROL FUMARATE DIHYDRATE
     Dosage: 3 DF, BID
     Route: 055
  30. SYMBICORT [Concomitant]
     Active Substance: BUDESONIDE\FORMOTEROL FUMARATE DIHYDRATE
     Dosage: 3 DF, BID
     Route: 065
  31. URSODIOL [Concomitant]
     Active Substance: URSODIOL
     Indication: Hepatic cirrhosis
     Dosage: 1 DOSAGE FORM, BID
     Route: 048
     Dates: start: 2016
  32. URSODIOL [Concomitant]
     Active Substance: URSODIOL
     Dosage: 2 DF, QD
     Route: 048
  33. VENTOLIN [Concomitant]
     Active Substance: ALBUTEROL SULFATE
     Route: 065
  34. VENTOLIN [Concomitant]
     Active Substance: ALBUTEROL SULFATE
     Indication: Asthma
     Route: 055
     Dates: start: 1987, end: 2019
  35. VENTOLIN [Concomitant]
     Active Substance: ALBUTEROL SULFATE
     Dosage: 2 DF, BID
     Route: 055
  36. VENTOLIN [Concomitant]
     Active Substance: ALBUTEROL SULFATE
     Dosage: 8 DF, QD
     Route: 055

REACTIONS (22)
  - Multiple organ dysfunction syndrome [Fatal]
  - Therapeutic product effect incomplete [Fatal]
  - Pseudomonas test positive [Fatal]
  - Cystic fibrosis [Unknown]
  - Cough [Not Recovered/Not Resolved]
  - Pneumonia [Unknown]
  - Nephrolithiasis [Unknown]
  - Mass [Unknown]
  - Forced expiratory volume decreased [Unknown]
  - Mycobacterium abscessus infection [Recovering/Resolving]
  - Aspergillus infection [Unknown]
  - Middle insomnia [Unknown]
  - Aphonia [Unknown]
  - Pulmonary function test decreased [Unknown]
  - Malaise [Unknown]
  - Gastrointestinal polyp [Unknown]
  - Asthma [Unknown]
  - Vomiting [Not Recovered/Not Resolved]
  - Bone pain [Unknown]
  - Heart rate increased [Unknown]
  - Wrong technique in product usage process [Unknown]
  - Product dose omission issue [Unknown]

NARRATIVE: CASE EVENT DATE: 20180213
